FAERS Safety Report 18115559 (Version 1)
Quarter: 2020Q3

REPORT INFORMATION
  Report Type: Spontaneous
  Country: DE (occurrence: DE)
  Receive Date: 20200805
  Receipt Date: 20200805
  Transmission Date: 20201103
  Serious: Yes (Death, Hospitalization)
  Sender: FDA-Public Use
  Company Number: DE-JNJFOC-20200203993

PATIENT
  Age: 80 Year
  Sex: Male
  Weight: 70 kg

DRUGS (4)
  1. NEBIVOLOL. [Concomitant]
     Active Substance: NEBIVOLOL
     Indication: HYPERTONIA
     Dosage: 5 MG, OM
     Route: 048
     Dates: start: 201810, end: 20190713
  2. RIVAROXABAN [Suspect]
     Active Substance: RIVAROXABAN
     Indication: PULMONARY EMBOLISM
     Dosage: 20 MG, QD
     Route: 048
     Dates: start: 2015, end: 20190128
  3. RIVAROXABAN [Suspect]
     Active Substance: RIVAROXABAN
     Dosage: 10 MG, OM
     Route: 048
     Dates: start: 20190129, end: 20190713
  4. PREDNISOLON [PREDNISOLONE] [Concomitant]
     Active Substance: PREDNISOLONE
     Indication: POLYMYALGIA RHEUMATICA
     Dosage: 3 MG, QD (2 MG TABLET IN THE MORNING AND HALF OF A 2 MG TABLET IN THE EVENING)
     Route: 048
     Dates: start: 2014, end: 20190713

REACTIONS (3)
  - Cerebral haemorrhage [Fatal]
  - Disturbance in attention [Fatal]
  - Headache [Fatal]

NARRATIVE: CASE EVENT DATE: 20190713
